FAERS Safety Report 9970923 (Version 1)
Quarter: 2014Q1

REPORT INFORMATION
  Report Type: Report from Study
  Country: US (occurrence: US)
  Receive Date: 20140306
  Receipt Date: 20140306
  Transmission Date: 20141002
  Serious: No
  Sender: FDA-Public Use
  Company Number: US-ABBVIE-13P-163-1150473-00

PATIENT
  Age: 69 Year
  Sex: Male

DRUGS (10)
  1. HUMIRA [Suspect]
     Indication: RHEUMATOID ARTHRITIS
  2. DIGOXIN [Concomitant]
     Indication: PRODUCT USED FOR UNKNOWN INDICATION
  3. METOPROLOL [Concomitant]
     Indication: ATRIAL FLUTTER
  4. ASA [Concomitant]
     Indication: PRODUCT USED FOR UNKNOWN INDICATION
     Dosage: 81MG DAILY
  5. WARFARIN [Concomitant]
     Indication: PRODUCT USED FOR UNKNOWN INDICATION
     Dosage: 5MG DAILY ECXEPT WED AND SUN 7.5MG
  6. HYDROXYCHLOROQUINE [Concomitant]
     Indication: ARTHRITIS
  7. PREDNISONE [Concomitant]
     Indication: RHEUMATOID ARTHRITIS
  8. FINASTERIDE [Concomitant]
     Indication: PROSTATIC DISORDER
  9. ALFUZOSIN [Concomitant]
     Indication: DIURETIC THERAPY
  10. ALLERGY SHOTS [Concomitant]
     Indication: PRODUCT USED FOR UNKNOWN INDICATION

REACTIONS (2)
  - Fungal infection [Recovering/Resolving]
  - Bacterial infection [Recovering/Resolving]
